FAERS Safety Report 7474837-9 (Version None)
Quarter: 2011Q2

REPORT INFORMATION
  Report Type: 
  Country: None (occurrence: None)
  Receive Date: 20110512
  Receipt Date: 20110329
  Transmission Date: 20111010
  Serious: Yes (Hospitalization, Other)
  Sender: FDA-Public Use
  Company Number: US-BAYER-201039358NA

PATIENT
  Age: 27 Year
  Sex: Female
  Weight: 63.492 kg

DRUGS (1)
  1. YASMIN [Suspect]
     Indication: ORAL CONTRACEPTION
     Route: 048
     Dates: start: 20050301, end: 20060201

REACTIONS (1)
  - DEEP VEIN THROMBOSIS [None]
